FAERS Safety Report 6025241-1 (Version None)
Quarter: 2008Q4

REPORT INFORMATION
  Report Type: 
  Country: None (occurrence: None)
  Receive Date: 20081224
  Receipt Date: 20081217
  Transmission Date: 20090506
  Serious: Yes (Death, Hospitalization)
  Sender: FDA-Public Use
  Company Number: 2008SP018993

PATIENT
  Age: 53 Year
  Sex: Male
  Weight: 74 kg

DRUGS (2)
  1. PEGATRON (PEGINTERFERON ALFA-2B W/ RIBAVIRIN) (PEGYLATED INTERFERON AL [Suspect]
     Indication: DRUG USE FOR UNKNOWN INDICATION
     Dosage: 0.5 ML, QW; 1000 MG, QD,
     Dates: start: 20080807, end: 20080912
  2. PEGATRON (PEGINTERFERON ALFA-2B W/ RIBAVIRIN) (PEGYLATED INTERFERON AL [Suspect]
     Indication: DRUG USE FOR UNKNOWN INDICATION
     Dosage: 0.5 ML, QW; 1000 MG, QD,
     Dates: start: 20080807, end: 20080912

REACTIONS (3)
  - ACUTE RESPIRATORY DISTRESS SYNDROME [None]
  - PNEUMONIA [None]
  - SEPTIC SHOCK [None]
